FAERS Safety Report 7829378-3 (Version None)
Quarter: 2011Q4

REPORT INFORMATION
  Report Type: 
  Country: None (occurrence: None)
  Receive Date: 20111020
  Receipt Date: 20111011
  Transmission Date: 20120403
  Serious: Yes (Other)
  Sender: FDA-Public Use
  Company Number: CA-ASTRAZENECA-2011SE61978

PATIENT
  Age: 68 Year
  Sex: Female
  Weight: 131 kg

DRUGS (1)
  1. NEXIUM [Suspect]
     Indication: GASTROOESOPHAGEAL REFLUX DISEASE
     Route: 048
     Dates: start: 20100101

REACTIONS (7)
  - UTERINE CANCER [None]
  - CONFUSIONAL STATE [None]
  - DRY MOUTH [None]
  - PARAESTHESIA [None]
  - BACK PAIN [None]
  - THERAPY CESSATION [None]
  - NERVOUSNESS [None]
